FAERS Safety Report 7118403-3 (Version None)
Quarter: 2010Q4

REPORT INFORMATION
  Report Type: 
  Country: None (occurrence: None)
  Receive Date: 20101123
  Receipt Date: 20101116
  Transmission Date: 20110411
  Serious: Yes (Life-Threatening, Hospitalization)
  Sender: FDA-Public Use
  Company Number: DE-SANOFI-AVENTIS-A04200900171

PATIENT
  Age: 82 Year
  Sex: Female

DRUGS (8)
  1. CLOPIDOGREL BISULFATE [Suspect]
     Indication: MYOCARDIAL INFARCTION
     Dosage: UNIT DOSE: 75 MG
     Route: 048
     Dates: start: 20071101, end: 20080328
  2. ACETYLSALICYLIC ACID [Suspect]
     Indication: MYOCARDIAL INFARCTION
     Dosage: UNIT DOSE: 100 MG
     Route: 048
     Dates: start: 20071101, end: 20080328
  3. FALITHROM ^FAHLBERG^ [Suspect]
     Indication: ATRIAL FIBRILLATION
     Route: 048
     Dates: end: 20080328
  4. SIMVASTATIN [Concomitant]
     Route: 048
     Dates: start: 20070101, end: 20080328
  5. BISOPROLOL FUMARATE [Concomitant]
     Dosage: UNIT DOSE: 2.5 MG
     Route: 048
     Dates: start: 20070101
  6. PANTOPRAZOLE SODIUM [Concomitant]
     Route: 048
     Dates: start: 20071101
  7. RAMIPRIL [Concomitant]
     Dosage: UNIT DOSE: 2.5 MG
     Route: 048
  8. TOREM /GFR/ [Concomitant]
     Route: 048

REACTIONS (3)
  - ANAEMIA [None]
  - GASTRIC ULCER [None]
  - LOWER GASTROINTESTINAL HAEMORRHAGE [None]
